FAERS Safety Report 9570338 (Version 2)
Quarter: 2014Q1

REPORT INFORMATION
  Report Type: Spontaneous
  Country: US (occurrence: US)
  Receive Date: 20130930
  Receipt Date: 20140303
  Transmission Date: 20141002
  Serious: No
  Sender: FDA-Public Use
  Company Number: US-AMGEN-USASP2013063386

PATIENT
  Age: 42 Year
  Sex: Female
  Weight: 76.64 kg

DRUGS (10)
  1. ENBREL [Suspect]
     Indication: RHEUMATOID ARTHRITIS
     Dosage: 50 MG, QWK
     Route: 058
     Dates: start: 20130613
  2. GLIMEPIRIDE [Concomitant]
     Dosage: 2 MG, TID
     Route: 048
     Dates: start: 20130129
  3. HYDROCHLOROTHIAZIDE [Concomitant]
     Dosage: 25 MG, QD
     Route: 048
     Dates: start: 20130129
  4. HYDROXYCHLOROQUINE SULFATE [Concomitant]
     Dosage: QD
     Route: 048
     Dates: start: 20130129
  5. LEVEMIR [Concomitant]
     Dosage: 100 UNIT/ML, UNK
     Route: 058
     Dates: start: 20130530
  6. LISINOPRIL [Concomitant]
     Dosage: 40 MG, UNK
     Route: 048
     Dates: start: 20130410
  7. PREDNISONE [Concomitant]
     Dosage: 5 MG, QD
     Route: 048
     Dates: start: 20130129
  8. SYNTHROID [Concomitant]
     Dosage: 300 MUG, QD
     Route: 048
     Dates: start: 20111125
  9. SYNTHROID [Concomitant]
     Dosage: 50 MUG, DAILY
     Route: 048
     Dates: start: 20120105
  10. PLAQUENIL                          /00072603/ [Concomitant]
     Dosage: 200 MG, BID
     Route: 048

REACTIONS (10)
  - Vein disorder [Not Recovered/Not Resolved]
  - Muscle spasms [Not Recovered/Not Resolved]
  - Finger deformity [Not Recovered/Not Resolved]
  - Pain in extremity [Not Recovered/Not Resolved]
  - Local swelling [Not Recovered/Not Resolved]
  - Arthralgia [Not Recovered/Not Resolved]
  - Gait disturbance [Not Recovered/Not Resolved]
  - Myalgia [Not Recovered/Not Resolved]
  - Red blood cell sedimentation rate increased [Unknown]
  - C-reactive protein increased [Unknown]
